FAERS Safety Report 20442209 (Version 3)
Quarter: 2022Q1

REPORT INFORMATION
  Report Type: Spontaneous
  Country: JP (occurrence: JP)
  Receive Date: 20220208
  Receipt Date: 20220314
  Transmission Date: 20220423
  Serious: No
  Sender: FDA-Public Use
  Company Number: JP-GLAXOSMITHKLINE-JP2022JPN016590

PATIENT
  Age: 64 Year
  Sex: Male
  Weight: 78 kg

DRUGS (13)
  1. SOTROVIMAB [Suspect]
     Active Substance: SOTROVIMAB
     Indication: COVID-19
     Dosage: 500 MG, QD
     Route: 042
     Dates: start: 20220117, end: 20220117
  2. ASTOMIN TABLETS [Concomitant]
     Indication: Respiratory symptom
     Dosage: 10 MG, TID
     Route: 048
     Dates: start: 20220117, end: 20220124
  3. ASTOMIN TABLETS [Concomitant]
     Indication: Upper respiratory tract inflammation
  4. CARBOCYSTEINE [Concomitant]
     Active Substance: CARBOCYSTEINE
     Indication: Respiratory symptom
     Dosage: 250 MG, QD
     Route: 048
     Dates: start: 20220117, end: 20220124
  5. CARBOCYSTEINE [Concomitant]
     Active Substance: CARBOCYSTEINE
     Indication: Productive cough
  6. CODEINE PHOSPHATE [Concomitant]
     Active Substance: CODEINE PHOSPHATE
     Indication: Respiratory symptom
     Dosage: 2 G, TID
     Route: 048
     Dates: start: 20220117, end: 20220124
  7. CODEINE PHOSPHATE [Concomitant]
     Active Substance: CODEINE PHOSPHATE
     Indication: Cough
  8. CODEINE PHOSPHATE [Concomitant]
     Active Substance: CODEINE PHOSPHATE
     Indication: Respiratory disorder
  9. DIAMOX TABLET [Concomitant]
     Indication: Epilepsy
     Dosage: UNK, BID
     Route: 048
     Dates: start: 20220117, end: 20220124
  10. CANDESARTAN CILEXETIL TABLET [Concomitant]
     Indication: Hypertension
     Dosage: UNK, QD
     Route: 048
     Dates: start: 20220117, end: 20220124
  11. AMLODIPINE BESYLATE [Concomitant]
     Active Substance: AMLODIPINE BESYLATE
     Indication: Hypertension
     Dosage: UNK, QD
     Route: 048
     Dates: start: 20220117, end: 20220124
  12. PHENYTOIN SODIUM [Concomitant]
     Active Substance: PHENYTOIN SODIUM
     Indication: Status epilepticus
     Dosage: UNK, QD
     Route: 048
     Dates: start: 20220117, end: 20220124
  13. AMLODIPINE BESYLATE\CANDESARTAN CILEXETIL [Concomitant]
     Active Substance: AMLODIPINE BESYLATE\CANDESARTAN CILEXETIL
     Dosage: UNK

REACTIONS (9)
  - Pruritus [Recovered/Resolved]
  - Rash [Recovering/Resolving]
  - Insomnia [Unknown]
  - Pyrexia [Unknown]
  - Rash macular [Unknown]
  - Skin adhesion [Unknown]
  - Pain [Unknown]
  - Drug eruption [Unknown]
  - Rash erythematous [Unknown]

NARRATIVE: CASE EVENT DATE: 20220117
